FAERS Safety Report 8279426-4 (Version None)
Quarter: 2012Q2

REPORT INFORMATION
  Report Type: 
  Country: None (occurrence: None)
  Receive Date: 20120412
  Receipt Date: 20110913
  Transmission Date: 20120825
  Serious: No
  Sender: FDA-Public Use
  Company Number: US-ASTRAZENECA-2011SE54983

PATIENT
  Age: 84 Year
  Sex: Female
  Weight: 88.5 kg

DRUGS (7)
  1. CADUET [Concomitant]
     Indication: BLOOD PRESSURE ABNORMAL
     Route: 065
  2. MICARDIS [Concomitant]
     Indication: BLOOD PRESSURE ABNORMAL
     Route: 065
  3. TYLENOL (CAPLET) [Concomitant]
     Indication: ARTHRITIS
     Route: 065
  4. METFORMIN HCL [Concomitant]
     Route: 065
  5. NEXIUM [Suspect]
     Indication: GASTROOESOPHAGEAL REFLUX DISEASE
     Route: 048
     Dates: start: 20060101
  6. METHOCARBAMOL [Concomitant]
     Indication: MUSCLE RELAXANT THERAPY
     Route: 065
  7. LEVOTHYROXINE SODIUM [Concomitant]
     Indication: THYROID DISORDER
     Route: 065

REACTIONS (3)
  - DRUG DOSE OMISSION [None]
  - DIABETES MELLITUS [None]
  - MALAISE [None]
